FAERS Safety Report 22599545 (Version 7)
Quarter: 2023Q4

REPORT INFORMATION
  Report Type: Report from Study
  Country: US (occurrence: US)
  Receive Date: 20230614
  Receipt Date: 20231110
  Transmission Date: 20240110
  Serious: No
  Sender: FDA-Public Use
  Company Number: US-002147023-NVSC2023US132364

PATIENT
  Sex: Female

DRUGS (1)
  1. KESIMPTA [Suspect]
     Active Substance: OFATUMUMAB
     Indication: Multiple sclerosis
     Dosage: UNK
     Route: 065
     Dates: start: 20230606

REACTIONS (7)
  - Pain [Unknown]
  - Migraine [Unknown]
  - Sleep disorder [Unknown]
  - Hypersomnia [Unknown]
  - Therapeutic response unexpected [Unknown]
  - Anxiety [Unknown]
  - Nausea [Unknown]
